FAERS Safety Report 6962534-5 (Version None)
Quarter: 2010Q3

REPORT INFORMATION
  Report Type: 
  Country: None (occurrence: None)
  Receive Date: 20100902
  Receipt Date: 20100823
  Transmission Date: 20110219
  Serious: Yes (Hospitalization, Other)
  Sender: FDA-Public Use
  Company Number: PHHO2010US10259

PATIENT
  Sex: Male
  Weight: 59.6 kg

DRUGS (42)
  1. MYCOPHENOLIC ACID [Suspect]
     Indication: RENAL TRANSPLANT
     Dosage: 720 MG, BID
     Route: 048
     Dates: start: 20100211, end: 20100602
  2. MYCOPHENOLIC ACID [Suspect]
     Dosage: 1440MG/DAY
     Route: 048
     Dates: start: 20100603, end: 20100609
  3. MYCOPHENOLIC ACID [Suspect]
     Dosage: 1080MG/DAY
     Route: 048
     Dates: start: 20100610, end: 20100613
  4. MYCOPHENOLIC ACID [Suspect]
     Dosage: 720MG/DAY
     Route: 048
     Dates: start: 20100614, end: 20100614
  5. MYCOPHENOLIC ACID [Suspect]
     Dosage: NO TREATMENT
     Dates: start: 20100615, end: 20100722
  6. MYCOPHENOLIC ACID [Suspect]
     Dosage: 180 MG, BID
     Route: 048
     Dates: start: 20100723, end: 20100808
  7. MYCOPHENOLIC ACID [Suspect]
     Dosage: 360 MG, BID
     Route: 048
     Dates: start: 20100809
  8. TACROLIMUS COMP-TAC+ [Suspect]
     Indication: RENAL TRANSPLANT
     Dosage: 2 MG, BID
     Route: 048
     Dates: start: 20100211, end: 20100213
  9. TACROLIMUS COMP-TAC+ [Suspect]
     Dosage: 3 MG, BID
     Route: 048
     Dates: start: 20100214, end: 20100224
  10. TACROLIMUS COMP-TAC+ [Suspect]
     Dosage: 3.5 MG, BID
     Route: 048
     Dates: start: 20100225, end: 20100307
  11. TACROLIMUS COMP-TAC+ [Suspect]
     Dosage: 4 MG, BID
     Route: 048
     Dates: start: 20100308, end: 20100309
  12. TACROLIMUS COMP-TAC+ [Suspect]
     Dosage: 2 MG, BID
     Route: 048
     Dates: start: 20100310, end: 20100310
  13. TACROLIMUS COMP-TAC+ [Suspect]
     Dosage: 3 MG, BID
     Route: 048
     Dates: start: 20100311, end: 20100314
  14. TACROLIMUS COMP-TAC+ [Suspect]
     Dosage: 4 MG, BID
     Route: 048
     Dates: start: 20100315, end: 20100317
  15. TACROLIMUS COMP-TAC+ [Suspect]
     Dosage: 5 MG, BID
     Route: 048
     Dates: start: 20100318, end: 20100313
  16. TACROLIMUS COMP-TAC+ [Suspect]
     Dosage: 6 MG, BID
     Route: 048
     Dates: start: 20100324, end: 20100401
  17. TACROLIMUS COMP-TAC+ [Suspect]
     Dosage: 5 MG, BID
     Route: 048
     Dates: start: 20100402, end: 20100404
  18. TACROLIMUS COMP-TAC+ [Suspect]
     Dosage: 4 MG, BID
     Route: 048
     Dates: start: 20100405, end: 20100418
  19. TACROLIMUS COMP-TAC+ [Suspect]
     Dosage: 5 MG, BID
     Route: 048
     Dates: start: 20100419, end: 20100502
  20. TACROLIMUS COMP-TAC+ [Suspect]
     Dosage: 6 MG, BID
     Route: 048
     Dates: start: 20100503, end: 20100516
  21. TACROLIMUS COMP-TAC+ [Suspect]
     Dosage: 7 MG, BID
     Route: 048
     Dates: start: 20100517, end: 20100603
  22. TACROLIMUS COMP-TAC+ [Suspect]
     Dosage: NO TREATMENT
     Dates: start: 20100604, end: 20100609
  23. RAPAMUNE COMP-RAP+ [Suspect]
     Indication: RENAL TRANSPLANT
     Dosage: 5 MG, BID
     Route: 048
     Dates: start: 20100604
  24. RAPAMUNE COMP-RAP+ [Suspect]
     Dosage: 3 MG, BID
     Dates: end: 20100609
  25. RAPAMUNE COMP-RAP+ [Suspect]
     Dosage: 3 MG DAILY
     Dates: start: 20100610, end: 20100616
  26. RAPAMUNE COMP-RAP+ [Suspect]
     Dosage: 2 MG DAILY
     Route: 048
     Dates: start: 20100617, end: 20100622
  27. RAPAMUNE COMP-RAP+ [Suspect]
     Dosage: 5 MG DAILY
     Route: 048
     Dates: start: 20100623, end: 20100729
  28. RAPAMUNE COMP-RAP+ [Suspect]
     Dosage: 6 MG DAILY
     Route: 048
     Dates: start: 20100730
  29. PREDNISONE [Concomitant]
  30. PRENATAL VITAMINS [Concomitant]
  31. VALGANCICLOVIR [Concomitant]
  32. TYLENOL-500 [Concomitant]
  33. CALCIUM CARBONATE [Concomitant]
  34. ZITHROMAX [Concomitant]
  35. VALCYTE [Concomitant]
  36. BACTRIM [Concomitant]
  37. CALCIUM [Concomitant]
  38. CARVEDILOL [Concomitant]
  39. DOCUSATE [Concomitant]
  40. ERGOCALCIFEROL [Concomitant]
  41. MULTI-VITAMINS [Concomitant]
  42. DIALYSIS [Concomitant]

REACTIONS (22)
  - ACCIDENTAL OVERDOSE [None]
  - ADENOTONSILLECTOMY [None]
  - ANAEMIA [None]
  - COUGH [None]
  - DEHYDRATION [None]
  - DIZZINESS [None]
  - DRUG LEVEL ABOVE THERAPEUTIC [None]
  - FATIGUE [None]
  - HAEMATEMESIS [None]
  - LEUKOPENIA [None]
  - MUCOSAL ULCERATION [None]
  - NAUSEA [None]
  - NEUTROPENIA [None]
  - OROPHARYNGEAL PAIN [None]
  - PAIN [None]
  - PYREXIA [None]
  - RHINOVIRUS INFECTION [None]
  - STOMATITIS [None]
  - SUPERINFECTION BACTERIAL [None]
  - TONSILLAR HAEMORRHAGE [None]
  - TONSILLITIS [None]
  - VIRAL PHARYNGITIS [None]
